FAERS Safety Report 7222249-5 (Version None)
Quarter: 2011Q1

REPORT INFORMATION
  Report Type: 
  Country: None (occurrence: None)
  Receive Date: 20110112
  Receipt Date: 20110106
  Transmission Date: 20110831
  Serious: Yes (Hospitalization, Other)
  Sender: FDA-Public Use
  Company Number: US-MERCK-0807USA00241

PATIENT
  Age: 61 Year
  Sex: Female
  Weight: 65 kg

DRUGS (4)
  1. FOSAMAX [Suspect]
     Indication: OSTEOPENIA
     Route: 048
     Dates: start: 20020401, end: 20060301
  2. FOSAMAX [Suspect]
     Indication: OSTEOPOROSIS
     Route: 048
     Dates: start: 20020401, end: 20060301
  3. HORMONES (UNSPECIFIED) [Concomitant]
     Indication: HORMONE REPLACEMENT THERAPY
     Route: 065
     Dates: start: 19930101, end: 20030301
  4. ACTONEL [Suspect]
     Indication: OSTEOPENIA
     Route: 048
     Dates: start: 20060301, end: 20060701

REACTIONS (17)
  - CYSTOCELE [None]
  - SKIN DISORDER [None]
  - HERPES ZOSTER [None]
  - STRESS URINARY INCONTINENCE [None]
  - UPPER LIMB FRACTURE [None]
  - UPPER RESPIRATORY TRACT INFECTION [None]
  - ULCER [None]
  - HERNIA OBSTRUCTIVE [None]
  - BONE DENSITY DECREASED [None]
  - DENTAL CARIES [None]
  - OSTEONECROSIS OF JAW [None]
  - UTERINE DISORDER [None]
  - SOFT TISSUE INFLAMMATION [None]
  - INFECTION [None]
  - HERNIA [None]
  - PSORIASIS [None]
  - ORAL DISORDER [None]
